FAERS Safety Report 9750153 (Version 2)
Quarter: 2013Q4

REPORT INFORMATION
  Report Type: Spontaneous
  Country: GR (occurrence: GR)
  Receive Date: 20131212
  Receipt Date: 20131212
  Transmission Date: 20140711
  Serious: No
  Sender: FDA-Public Use
  Company Number: GR-GILEAD-GR-CVT-100034

PATIENT
  Age: 86 Year
  Sex: Male

DRUGS (9)
  1. RANEXA [Suspect]
     Indication: PRODUCT USED FOR UNKNOWN INDICATION
     Dates: start: 2009, end: 201001
  2. AMIODARONE                         /00133101/ [Concomitant]
     Indication: CORONARY ARTERY DISEASE
  3. EZETIMIBE [Concomitant]
     Indication: DYSLIPIDAEMIA
  4. ISOSORBIDE MONONITRATE [Concomitant]
     Indication: CORONARY ARTERY DISEASE
  5. ACETYLSALICYLIC ACID [Concomitant]
     Indication: CORONARY ARTERY DISEASE
  6. METOPROLOL                         /00376901/ [Concomitant]
     Indication: CORONARY ARTERY DISEASE
  7. ATORVASTATIN                       /01326101/ [Concomitant]
     Indication: DYSLIPIDAEMIA
  8. TAMSULOSIN [Concomitant]
     Indication: BENIGN PROSTATIC HYPERPLASIA
  9. GALANTAMINE [Concomitant]
     Indication: DEMENTIA

REACTIONS (2)
  - Chromaturia [Recovered/Resolved]
  - Dizziness [Recovering/Resolving]
